FAERS Safety Report 4417609-1 (Version None)
Quarter: 2004Q3

REPORT INFORMATION
  Report Type: 
  Country: None (occurrence: None)
  Receive Date: 20040803
  Receipt Date: 20040728
  Transmission Date: 20050211
  Serious: Yes (Hospitalization, Other)
  Sender: FDA-Public Use
  Company Number: FRWYE936129JUL04

PATIENT
  Age: 66 Year
  Sex: Female

DRUGS (5)
  1. OXAZEPAM [Suspect]
     Dosage: 1 DOSE 1X PER 1 DAY ORAL
     Route: 048
     Dates: start: 20040125, end: 20040131
  2. ATHYMIL (MIANSERIN HYDROCHLORIDE) [Suspect]
     Dosage: ORAL
     Route: 048
     Dates: start: 20040125, end: 20040131
  3. ZESTORETIC [Suspect]
     Dosage: ORAL
     Route: 048
     Dates: end: 20040202
  4. VIOXX [Concomitant]
  5. FENOFIBRATE [Concomitant]

REACTIONS (6)
  - BALANCE DISORDER [None]
  - FACE INJURY [None]
  - FALL [None]
  - HYPOTENSION [None]
  - RENAL FAILURE ACUTE [None]
  - URINARY TRACT INFECTION [None]
